FAERS Safety Report 22035706 (Version 1)
Quarter: 2023Q1

REPORT INFORMATION
  Report Type: Spontaneous
  Country: DE (occurrence: DE)
  Receive Date: 20230224
  Receipt Date: 20230224
  Transmission Date: 20230417
  Serious: Yes (Other)
  Sender: FDA-Public Use
  Company Number: DE-BRISTOL-MYERS SQUIBB COMPANY-2023-025042

PATIENT
  Age: 61 Year
  Sex: Male

DRUGS (4)
  1. OPDIVO [Suspect]
     Active Substance: NIVOLUMAB
     Indication: Renal cell carcinoma
  2. OPDIVO [Suspect]
     Active Substance: NIVOLUMAB
     Dates: start: 202002
  3. OPDIVO [Suspect]
     Active Substance: NIVOLUMAB
     Dates: start: 201910
  4. YERVOY [Suspect]
     Active Substance: IPILIMUMAB
     Indication: Renal cell carcinoma

REACTIONS (16)
  - Pruritus [Unknown]
  - Haematuria [Unknown]
  - Autoimmune hepatitis [Unknown]
  - Diarrhoea [Unknown]
  - Nausea [Unknown]
  - Sudden hearing loss [Unknown]
  - Metastases to central nervous system [Unknown]
  - Weight decreased [Unknown]
  - Metastases to bone [Unknown]
  - General physical health deterioration [Unknown]
  - Dysarthria [Unknown]
  - Aphasia [Unknown]
  - Decreased appetite [Unknown]
  - Asthenia [Unknown]
  - Dysphagia [Unknown]
  - Tic [Unknown]
